FAERS Safety Report 8225719-6 (Version None)
Quarter: 2012Q1

REPORT INFORMATION
  Report Type: 
  Country: None (occurrence: None)
  Receive Date: 20120321
  Receipt Date: 20120307
  Transmission Date: 20120608
  Serious: Yes (Death, Other)
  Sender: FDA-Public Use
  Company Number: DE-CELGENEUS-062-21880-12030833

PATIENT
  Age: 59 Year
  Sex: Male

DRUGS (6)
  1. LEVOTHYROXINE SODIUM [Concomitant]
     Route: 065
  2. ASPIRIN [Concomitant]
     Dosage: 100 MILLIGRAM
     Route: 065
  3. COLECALCIFEROL [Concomitant]
     Route: 065
  4. REVLIMID [Suspect]
     Indication: MULTIPLE MYELOMA
     Dosage: 25 MILLIGRAM
     Route: 048
  5. REVLIMID [Suspect]
     Dosage: 15 MILLIGRAM
     Route: 048
  6. RAMIPRIL [Concomitant]
     Route: 065

REACTIONS (3)
  - TRANSAMINASES INCREASED [None]
  - INFECTION [None]
  - DIARRHOEA INFECTIOUS [None]
